FAERS Safety Report 21047256 (Version 1)
Quarter: 2022Q3

REPORT INFORMATION
  Report Type: Report from Study
  Country: US (occurrence: US)
  Receive Date: 20220706
  Receipt Date: 20220706
  Transmission Date: 20221027
  Serious: Yes (Hospitalization, Other)
  Sender: FDA-Public Use
  Company Number: US-BRISTOL-MYERS SQUIBB COMPANY-2022-017067

PATIENT
  Age: 61 Year
  Sex: Female
  Weight: 83 kg

DRUGS (2)
  1. REVLIMID [Suspect]
     Active Substance: LENALIDOMIDE
     Indication: Plasma cell myeloma
     Dosage: DAILY 21DAYS
     Route: 048
     Dates: start: 202005
  2. REVLIMID [Suspect]
     Active Substance: LENALIDOMIDE
     Dosage: DAILY 21 OF 28 DAYS
     Route: 048
     Dates: start: 20200513

REACTIONS (4)
  - Salmonellosis [Unknown]
  - COVID-19 [Unknown]
  - Vitamin D decreased [Unknown]
  - Vitamin B6 decreased [Unknown]
